FAERS Safety Report 8924419 (Version 1)
Quarter: 2012Q4

REPORT INFORMATION
  Report Type: 
  Country: FR (occurrence: FR)
  Receive Date: 20121126
  Receipt Date: 20121126
  Transmission Date: 20130627
  Serious: Yes (Hospitalization, Other)
  Sender: FDA-Public Use
  Company Number: FR-PFIZER INC-2012291906

PATIENT
  Age: 65 Year
  Sex: Female
  Weight: 66 kg

DRUGS (16)
  1. XANAX [Suspect]
     Indication: ANXIETY
     Dosage: UNK
     Route: 048
     Dates: start: 20120821, end: 20120906
  2. ZYVOXID [Suspect]
     Dosage: 600 mg, 2x/day
     Route: 048
     Dates: start: 20120804, end: 20120907
  3. TAVANIC [Suspect]
     Indication: ANTIBACTERIAL PROPHYLAXIS
     Dosage: UNK
     Route: 048
     Dates: end: 20120904
  4. MYFORTIC [Suspect]
     Dosage: UNK
     Route: 048
     Dates: start: 20120831, end: 20120906
  5. ZOPHREN [Concomitant]
     Dosage: 8 mg, 3x/day
     Route: 048
     Dates: start: 20120821, end: 20120906
  6. ULCAR [Concomitant]
     Indication: GASTRIC ULCER
     Dosage: UNK
     Route: 048
     Dates: start: 20120804, end: 20120906
  7. TAZOCILLINE [Concomitant]
     Dosage: 4 g, 4x/day
     Route: 042
     Dates: start: 20120823
  8. FOSFOCINE [Concomitant]
     Dosage: 4 g, 3x/day
     Route: 042
     Dates: start: 20120824, end: 20120906
  9. CANCIDAS [Concomitant]
     Dosage: 50 mg, daily
     Route: 048
     Dates: start: 20120517
  10. ZELITREX [Concomitant]
     Dosage: 500 mg, 2x/day
     Route: 048
     Dates: start: 20120804
  11. BACTRIM [Concomitant]
     Dosage: UNK
     Route: 048
     Dates: start: 20120810
  12. RAPAMUNE [Concomitant]
     Dosage: 2.5 mg, daily
     Dates: start: 20120606
  13. ENTOCORT [Concomitant]
     Dosage: UNK
  14. LASILIX [Concomitant]
     Dosage: 60 mg, UNK
  15. CORDARONE [Concomitant]
     Dosage: UNK
  16. INEXIUM [Concomitant]
     Dosage: 40 mg, daily

REACTIONS (8)
  - Brief psychotic disorder with marked stressors [Recovering/Resolving]
  - Plasma cell myeloma [Recovering/Resolving]
  - Confusional state [Recovering/Resolving]
  - Hallucinations, mixed [Recovering/Resolving]
  - Epstein-Barr virus infection [Recovering/Resolving]
  - Nervous system disorder [Recovering/Resolving]
  - Disorientation [Recovering/Resolving]
  - Abnormal dreams [Recovering/Resolving]
